FAERS Safety Report 6179594-4 (Version None)
Quarter: 2009Q2

REPORT INFORMATION
  Report Type: 
  Country: None (occurrence: None)
  Receive Date: 20090501
  Receipt Date: 20090501
  Transmission Date: 20091009
  Serious: Yes (Life-Threatening, Hospitalization, Other)
  Sender: FDA-Public Use
  Company Number: None

PATIENT
  Sex: Male
  Weight: 99.7913 kg

DRUGS (2)
  1. UNASYN [Suspect]
     Indication: INFECTION
     Dates: start: 20090410, end: 20090411
  2. KEFLEX [Suspect]
     Indication: INFECTION
     Dates: start: 20090404, end: 20090408

REACTIONS (2)
  - STEVENS-JOHNSON SYNDROME [None]
  - WHITE BLOOD CELL COUNT INCREASED [None]
